FAERS Safety Report 7933413-1 (Version None)
Quarter: 2011Q4

REPORT INFORMATION
  Report Type: 
  Country: None (occurrence: None)
  Receive Date: 20111122
  Receipt Date: 20111122
  Transmission Date: 20120403
  Serious: Yes (Other)
  Sender: FDA-Public Use
  Company Number: None

PATIENT
  Age: 17 Year
  Sex: Male
  Weight: 77.11 kg

DRUGS (2)
  1. CEFUROXIME AXETIL [Suspect]
     Indication: BACTERIAL INFECTION
     Dosage: 1 TABLET
     Route: 048
     Dates: start: 20111112, end: 20111114
  2. CEFUROXIME AXETIL [Suspect]
     Indication: PNEUMONIA
     Dosage: 1 TABLET
     Route: 048
     Dates: start: 20111112, end: 20111114

REACTIONS (3)
  - EYE PRURITUS [None]
  - EYE DISCHARGE [None]
  - EYE SWELLING [None]
